FAERS Safety Report 22601150 (Version 1)
Quarter: 2023Q2

REPORT INFORMATION
  Report Type: Spontaneous
  Country: IL (occurrence: IL)
  Receive Date: 20230614
  Receipt Date: 20230614
  Transmission Date: 20230721
  Serious: Yes (Other)
  Sender: FDA-Public Use
  Company Number: IL-PFIZER INC-PV202300101376

PATIENT
  Age: 13 Year
  Sex: Male

DRUGS (1)
  1. SOMATROPIN [Suspect]
     Active Substance: SOMATROPIN
     Dosage: UNK, DAILY
     Route: 058

REACTIONS (2)
  - Device delivery system issue [Unknown]
  - Haemorrhage [Unknown]
